FAERS Safety Report 8331612-0 (Version None)
Quarter: 2012Q2

REPORT INFORMATION
  Report Type: 
  Country: None (occurrence: None)
  Receive Date: 20120502
  Receipt Date: 20120420
  Transmission Date: 20120825
  Serious: No
  Sender: FDA-Public Use
  Company Number: US-AMGEN-USASP2012025108

PATIENT
  Age: 56 Year
  Sex: Female

DRUGS (1)
  1. ENBREL [Suspect]
     Indication: PSORIATIC ARTHROPATHY
     Dosage: UNK
     Dates: start: 20040401

REACTIONS (6)
  - DYSSTASIA [None]
  - PAIN [None]
  - GAIT DISTURBANCE [None]
  - ARTHRALGIA [None]
  - GROIN PAIN [None]
  - BACK PAIN [None]
